FAERS Safety Report 13984970 (Version 2)
Quarter: 2018Q1

REPORT INFORMATION
  Report Type: Spontaneous
  Country: US (occurrence: US)
  Receive Date: 20170919
  Receipt Date: 20180309
  Transmission Date: 20180508
  Serious: No
  Sender: FDA-Public Use
  Company Number: US-ASTRAZENECA-2017SE94553

PATIENT
  Age: 24507 Day
  Sex: Male
  Weight: 70.3 kg

DRUGS (2)
  1. SYMBICORT [Suspect]
     Active Substance: BUDESONIDE\FORMOTEROL FUMARATE DIHYDRATE
     Dosage: 160/4.5MCG 2 PUFFS;TWO TIMES A DAY
     Route: 055
  2. SPIRIVA [Concomitant]
     Active Substance: TIOTROPIUM BROMIDE MONOHYDRATE
     Dosage: 2 PUFFS DAILY

REACTIONS (5)
  - Tremor [Unknown]
  - Drug dose omission [Unknown]
  - Intentional product misuse [Unknown]
  - Confusional state [Unknown]
  - Device failure [Unknown]

NARRATIVE: CASE EVENT DATE: 20170909
